FAERS Safety Report 13114094 (Version 4)
Quarter: 2017Q2

REPORT INFORMATION
  Report Type: Spontaneous
  Country: US (occurrence: US)
  Receive Date: 20170113
  Receipt Date: 20170404
  Transmission Date: 20170830
  Serious: No
  Sender: FDA-Public Use
  Company Number: US-PFIZER INC-2017010297

PATIENT
  Age: 66 Year
  Sex: Male
  Weight: 88.45 kg

DRUGS (3)
  1. OXYCODONE [Concomitant]
     Active Substance: OXYCODONE
     Dosage: UNK, 2X/DAY
     Dates: start: 201611, end: 201703
  2. TORISEL [Suspect]
     Active Substance: TEMSIROLIMUS
     Dosage: UNK
     Route: 042
     Dates: start: 20161220
  3. TORISEL [Suspect]
     Active Substance: TEMSIROLIMUS
     Indication: RENAL CANCER STAGE IV
     Dosage: UNK
     Route: 042
     Dates: start: 20161213

REACTIONS (6)
  - Hypertension [Recovered/Resolved]
  - Malaise [Recovered/Resolved]
  - Erythema [Recovered/Resolved]
  - Flushing [Recovered/Resolved]
  - Palpitations [Recovered/Resolved]
  - Throat tightness [Recovered/Resolved]

NARRATIVE: CASE EVENT DATE: 20161213
